FAERS Safety Report 5835089-6 (Version None)
Quarter: 2008Q3

REPORT INFORMATION
  Report Type: 
  Country: None (occurrence: None)
  Receive Date: 20080806
  Receipt Date: 20080801
  Transmission Date: 20090109
  Serious: Yes (Life-Threatening)
  Sender: FDA-Public Use
  Company Number: BR-BAYER-200816199LA

PATIENT
  Age: 31 Year
  Sex: Female

DRUGS (2)
  1. MIRENA [Suspect]
     Indication: MENORRHAGIA
     Route: 015
     Dates: start: 20061207, end: 20080605
  2. CEPHALEXIN [Concomitant]
     Indication: DRUG USE FOR UNKNOWN INDICATION
     Route: 048
     Dates: start: 20080601

REACTIONS (8)
  - ABDOMINAL PAIN [None]
  - ABDOMINAL PAIN LOWER [None]
  - GENITAL HAEMORRHAGE [None]
  - HAEMORRHAGIC ANAEMIA [None]
  - HYPOVOLAEMIC SHOCK [None]
  - PROCEDURAL PAIN [None]
  - RUPTURED ECTOPIC PREGNANCY [None]
  - SYNCOPE [None]
